FAERS Safety Report 6420057-6 (Version None)
Quarter: 2009Q4

REPORT INFORMATION
  Report Type: 
  Country: None (occurrence: None)
  Receive Date: 20091029
  Receipt Date: 20091022
  Transmission Date: 20100525
  Serious: Yes (Other)
  Sender: FDA-Public Use
  Company Number: CA-BAUSCH-2009BL005331

PATIENT
  Age: 52 Year
  Sex: Male

DRUGS (4)
  1. DEXAMETHASONE [Suspect]
     Indication: POSTOPERATIVE CARE
     Route: 047
     Dates: start: 20080101, end: 20080101
  2. MOXIFLOXACIN HCL [Concomitant]
     Indication: POSTOPERATIVE CARE
     Route: 047
     Dates: start: 20080101
  3. LATANOPROST [Concomitant]
     Indication: POSTOPERATIVE CARE
     Route: 047
     Dates: start: 20080101
  4. DORZOLAMIDE HCL AND TIMOLOL MALEATE [Concomitant]
     Indication: POSTOPERATIVE CARE
     Route: 047
     Dates: start: 20080101

REACTIONS (2)
  - INTRAOCULAR PRESSURE INCREASED [None]
  - KERATITIS [None]
